FAERS Safety Report 5406853-2 (Version None)
Quarter: 2007Q3

REPORT INFORMATION
  Report Type: 
  Country: None (occurrence: None)
  Receive Date: 20070802
  Receipt Date: 20070626
  Transmission Date: 20080115
  Serious: Yes (Death, Other)
  Sender: FDA-Public Use
  Company Number: 003#4#2007-00024

PATIENT
  Age: 85 Year
  Sex: Male

DRUGS (10)
  1. NEUPRO-PATCH-DOSE-UNKNOWN (ROTIGOTINE) [Suspect]
     Indication: PARKINSON'S DISEASE
     Dosage: 2 MG/24H (2 MG/24H 1 IN 1 DAY (S)) TRANSDERMAL; 4 MG/24H (4 MG/24H 1 IN 1 DAY (S)) TRANSDERMAL
     Route: 062
     Dates: start: 20070110, end: 20070201
  2. NEUPRO-PATCH-DOSE-UNKNOWN (ROTIGOTINE) [Suspect]
     Indication: PARKINSON'S DISEASE
     Dosage: 2 MG/24H (2 MG/24H 1 IN 1 DAY (S)) TRANSDERMAL; 4 MG/24H (4 MG/24H 1 IN 1 DAY (S)) TRANSDERMAL
     Route: 062
     Dates: start: 20070214, end: 20070225
  3. CO-CARELDOPA (CARBIDOPA, LEVODOPA) [Concomitant]
  4. ASPIRIN [Concomitant]
  5. CITALOPRAM HYDROBROMIDE [Concomitant]
  6. TRIPTORELIN ACETATE (TRIPTORELIN ACETATE) [Concomitant]
  7. DONEPEZIL HCL [Concomitant]
  8. SENNA (SENNA) [Concomitant]
  9. FOOD SUPPLEMENTS [Concomitant]
  10. TRIMETHOPRIM [Concomitant]

REACTIONS (12)
  - ATRIAL FIBRILLATION [None]
  - BLOOD PRESSURE FLUCTUATION [None]
  - CEREBRAL ISCHAEMIA [None]
  - COMA [None]
  - CONFUSIONAL STATE [None]
  - DEHYDRATION [None]
  - DEPRESSED LEVEL OF CONSCIOUSNESS [None]
  - HYPOTENSION [None]
  - INFECTION [None]
  - MOBILITY DECREASED [None]
  - MYOCARDIAL INFARCTION [None]
  - URINARY TRACT INFECTION [None]
